FAERS Safety Report 4674177-7 (Version None)
Quarter: 2005Q2

REPORT INFORMATION
  Report Type: 
  Country: None (occurrence: None)
  Receive Date: 20050524
  Receipt Date: 20050510
  Transmission Date: 20051028
  Serious: Yes (Hospitalization)
  Sender: FDA-Public Use
  Company Number: US-2005-008034

PATIENT
  Age: 42 Year
  Sex: Female

DRUGS (3)
  1. YASMIN [Suspect]
     Indication: MENORRHAGIA
     Dosage: 1 TAB (S), 1X/DAY, ORAL
     Route: 048
  2. NARATRIPTAN (NARATRIPTAN) [Suspect]
     Indication: MIGRAINE
     Dosage: 2.5 MG, OTHER, ORAL
     Route: 048
  3. TOPIRAMATE [Concomitant]

REACTIONS (7)
  - COLITIS ISCHAEMIC [None]
  - HEADACHE [None]
  - LARGE INTESTINAL ULCER [None]
  - PYREXIA [None]
  - RECTAL HAEMORRHAGE [None]
  - THERAPEUTIC RESPONSE UNEXPECTED [None]
  - WHITE BLOOD CELL COUNT INCREASED [None]
